FAERS Safety Report 5526954-8 (Version None)
Quarter: 2007Q4

REPORT INFORMATION
  Report Type: 
  Country: None (occurrence: None)
  Receive Date: 20071127
  Receipt Date: 20071115
  Transmission Date: 20080405
  Serious: Yes (Other)
  Sender: FDA-Public Use
  Company Number: US-PFIZER INC-2007097992

PATIENT
  Sex: Male
  Weight: 112.5 kg

DRUGS (11)
  1. CHANTIX [Suspect]
     Indication: DECREASED APPETITE
     Dates: start: 20071101, end: 20071107
  2. DIGITEK [Concomitant]
  3. ATENOLOL [Concomitant]
  4. NORVASC [Concomitant]
  5. DEPAKOTE [Concomitant]
  6. HYDROCODONE BITARTRATE [Concomitant]
     Dosage: TEXT:7.5/750
  7. ALLOPURINOL [Concomitant]
  8. AVODART [Concomitant]
  9. LEVAQUIN [Concomitant]
  10. COUMADIN [Concomitant]
  11. AMBIEN [Concomitant]

REACTIONS (7)
  - DIZZINESS [None]
  - DRUG LEVEL [None]
  - ERUCTATION [None]
  - FALL [None]
  - FEELING COLD [None]
  - NAUSEA [None]
  - SEDATION [None]
